FAERS Safety Report 21508477 (Version 2)
Quarter: 2022Q4

REPORT INFORMATION
  Report Type: Report from Study
  Country: KR (occurrence: KR)
  Receive Date: 20221026
  Receipt Date: 20221130
  Transmission Date: 20230113
  Serious: Yes (Other)
  Sender: FDA-Public Use
  Company Number: KR-OTSUKA-2022_040878

PATIENT
  Age: 28 Year
  Sex: Female

DRUGS (8)
  1. PONATINIB [Suspect]
     Active Substance: PONATINIB
     Indication: Philadelphia positive acute lymphocytic leukaemia
     Dosage: 30 MILLIGRAM, QD
     Route: 048
     Dates: start: 20220712, end: 20220809
  2. K CAB [Concomitant]
     Indication: Gastrointestinal disorder
     Dosage: UNK UNK, QD
     Route: 048
     Dates: start: 20220712, end: 20220823
  3. LIVIAL [Concomitant]
     Active Substance: TIBOLONE
     Indication: Premature menopause
     Dosage: UNK UNK, QD
     Route: 048
     Dates: start: 20220712, end: 20220823
  4. SANCUSO [Concomitant]
     Active Substance: GRANISETRON
     Indication: Prophylaxis of nausea and vomiting
     Dosage: UNK DOSAGE FORM, 1/WEEK
     Route: 062
     Dates: start: 20220712, end: 20220725
  5. TIROPRAMIDE [Concomitant]
     Active Substance: TIROPRAMIDE
     Indication: Abdominal discomfort
     Dosage: UNK UNK, TID
     Route: 048
     Dates: start: 20220712, end: 20220823
  6. URSODIOL [Concomitant]
     Active Substance: URSODIOL
     Indication: Liver function test increased
     Dosage: UNK UNK, TID
     Route: 048
     Dates: start: 20220712, end: 20220818
  7. URSODIOL [Concomitant]
     Active Substance: URSODIOL
     Indication: Prophylaxis
  8. Vicaferol Plus tab [Concomitant]
     Indication: Premature menopause
     Dosage: UNK UNK, QD
     Route: 048
     Dates: start: 20220712, end: 20220823

REACTIONS (1)
  - Philadelphia positive acute lymphocytic leukaemia [Recovered/Resolved]

NARRATIVE: CASE EVENT DATE: 20220809
